FAERS Safety Report 14699732 (Version 1)
Quarter: 2018Q1

REPORT INFORMATION
  Report Type: Spontaneous
  Country: US (occurrence: US)
  Receive Date: 20180329
  Receipt Date: 20180329
  Transmission Date: 20180509
  Serious: Yes (Disabling)
  Sender: FDA-Public Use
  Company Number: None

PATIENT
  Age: 41 Year
  Sex: Female
  Weight: 71.55 kg

DRUGS (11)
  1. VITAMIN B [Concomitant]
     Active Substance: VITAMIN B
  2. VITAMIN D [Concomitant]
     Active Substance: CHOLECALCIFEROL
  3. SYMBICORT [Concomitant]
     Active Substance: BUDESONIDE\FORMOTEROL FUMARATE DIHYDRATE
  4. VITAMIN C [Concomitant]
     Active Substance: ASCORBIC ACID
  5. ZINC. [Concomitant]
     Active Substance: ZINC
  6. PROBIOTIC (50 BILLION) [Concomitant]
  7. LEVOFLOXCIN [Suspect]
     Active Substance: LEVOFLOXACIN
     Indication: RESPIRATORY TRACT INFECTION
     Dosage: ?          QUANTITY:1 TABLET(S);?
     Route: 048
     Dates: start: 20180121, end: 20180130
  8. XOPENEX [Concomitant]
     Active Substance: LEVALBUTEROL HYDROCHLORIDE
  9. FLONASE [Concomitant]
     Active Substance: FLUTICASONE PROPIONATE
  10. MAGNESIUM [Concomitant]
     Active Substance: MAGNESIUM
  11. OMEGA [Concomitant]
     Active Substance: CONVALLARIA MAJALIS\CRATAEGUS LAEVIGATA LEAF\PROXYPHYLLINE

REACTIONS (3)
  - Arthralgia [None]
  - Infection [None]
  - Tendon pain [None]

NARRATIVE: CASE EVENT DATE: 20180122
